FAERS Safety Report 9329358 (Version 1)
Quarter: 2013Q2

REPORT INFORMATION
  Report Type: Spontaneous
  Country: US (occurrence: US)
  Receive Date: 20130604
  Receipt Date: 20130604
  Transmission Date: 20140414
  Serious: No
  Sender: FDA-Public Use
  Company Number: US-SANOFI-AVENTIS-2012SA083095

PATIENT
  Sex: Male

DRUGS (2)
  1. LANTUS SOLOSTAR [Suspect]
     Dosage: DOSE:10 UNIT(S)
     Route: 058
     Dates: start: 20121001
  2. SOLOSTAR [Suspect]
     Dates: start: 20121001

REACTIONS (5)
  - Burning sensation [Unknown]
  - Pain in extremity [Unknown]
  - Blood glucose abnormal [Unknown]
  - Injection site pain [Unknown]
  - Insomnia [Unknown]
